FAERS Safety Report 24342254 (Version 1)
Quarter: 2024Q3

REPORT INFORMATION
  Report Type: Spontaneous
  Country: FR (occurrence: FR)
  Receive Date: 20240920
  Receipt Date: 20240920
  Transmission Date: 20241016
  Serious: Yes (Life-Threatening, Other)
  Sender: AUROBINDO
  Company Number: FR-AFSSAPS-AN2024001211

PATIENT
  Age: 75 Year
  Sex: Male
  Weight: 59.6 kg

DRUGS (6)
  1. LIDOCAINE [Suspect]
     Active Substance: LIDOCAINE
     Indication: Anaesthesia
     Dosage: 50 MILLIGRAM
     Route: 042
     Dates: start: 20240724, end: 20240724
  2. METRONIDAZOLE [Suspect]
     Active Substance: METRONIDAZOLE
     Indication: Antifungal prophylaxis
     Dosage: 3 DOSAGE FORM
     Route: 048
     Dates: start: 20240723, end: 20240724
  3. ATRACURIUM [Suspect]
     Active Substance: ATRACURIUM
     Indication: Anaesthesia
     Dosage: 50 MILLIGRAM
     Route: 042
     Dates: start: 20240724, end: 20240724
  4. KETAMINE [Suspect]
     Active Substance: KETAMINE
     Indication: Anaesthesia
     Dosage: 15 MILLIGRAM
     Route: 042
     Dates: start: 20240724, end: 20240724
  5. SUFENTANIL [Suspect]
     Active Substance: SUFENTANIL
     Indication: Anaesthesia
     Dosage: 15 MICROGRAM
     Route: 042
     Dates: start: 20240724, end: 20240724
  6. PROPOFOL [Concomitant]
     Active Substance: PROPOFOL
     Indication: Anaesthesia
     Dosage: 170 MILLIGRAM
     Route: 042
     Dates: start: 20240724, end: 20240724

REACTIONS (1)
  - Anaphylactic shock [Recovered/Resolved]

NARRATIVE: CASE EVENT DATE: 20240724
